FAERS Safety Report 8065585-5 (Version None)
Quarter: 2012Q1

REPORT INFORMATION
  Report Type: 
  Country: None (occurrence: None)
  Receive Date: 20120124
  Receipt Date: 20120113
  Transmission Date: 20120608
  Serious: Yes (Hospitalization)
  Sender: FDA-Public Use
  Company Number: US-JNJFOC-20120105469

PATIENT
  Sex: Female
  Weight: 55.34 kg

DRUGS (3)
  1. REMICADE [Suspect]
     Indication: COLITIS ULCERATIVE
     Route: 042
     Dates: start: 20100801
  2. REMICADE [Suspect]
     Route: 042
     Dates: start: 20101001, end: 20101001
  3. PAIN KILLERS [Concomitant]
     Indication: PAIN
     Route: 048
     Dates: start: 20101101

REACTIONS (3)
  - RESPIRATORY TRACT INFECTION [None]
  - COLITIS ULCERATIVE [None]
  - INFLAMMATION [None]
